FAERS Safety Report 7529892-4 (Version None)
Quarter: 2011Q2

REPORT INFORMATION
  Report Type: 
  Country: None (occurrence: None)
  Receive Date: 20110607
  Receipt Date: 20110524
  Transmission Date: 20111010
  Serious: No
  Sender: FDA-Public Use
  Company Number: US-B.I. PHARMACEUTICALS,INC./RIDGEFIELD-2011-BP-11797BP

PATIENT
  Sex: Female

DRUGS (6)
  1. SPIRIVA [Suspect]
     Indication: CHRONIC OBSTRUCTIVE PULMONARY DISEASE
     Dosage: 18 MCG
     Dates: start: 20110301
  2. ASPIRIN [Concomitant]
     Dosage: 81 MG
  3. MULTI-VITAMIN [Concomitant]
  4. CALCIUM WITH VIT D3 [Concomitant]
  5. DIOVAN [Concomitant]
     Dosage: 160 MG
  6. FISH OIL OMEGA 3 [Concomitant]
     Dosage: 1000 MG

REACTIONS (4)
  - DYSPHONIA [None]
  - PRODUCTIVE COUGH [None]
  - INCREASED UPPER AIRWAY SECRETION [None]
  - COUGH [None]
